FAERS Safety Report 8308929-9 (Version None)
Quarter: 2012Q2

REPORT INFORMATION
  Report Type: 
  Country: None (occurrence: None)
  Receive Date: 20120421
  Receipt Date: 20120421
  Transmission Date: 20120825
  Serious: Yes (Hospitalization)
  Sender: FDA-Public Use
  Company Number: None

PATIENT
  Age: 59 Year
  Sex: Male
  Weight: 100 kg

DRUGS (2)
  1. LISINOPRIL AND HYDROCHLOROTHIAZIDE [Suspect]
     Indication: HYPERTENSION
     Dosage: 1 TAB EVERY DAY PO
     Route: 048
     Dates: start: 20120110, end: 20120418
  2. CARVEDILOL [Suspect]
     Indication: HYPERTENSION
     Dosage: 12.5 MG BID PO
     Route: 048
     Dates: start: 20090621

REACTIONS (2)
  - HYPOTENSION [None]
  - HYPERHIDROSIS [None]
